FAERS Safety Report 10260144 (Version 3)
Quarter: 2015Q1

REPORT INFORMATION
  Report Type: Spontaneous
  Country: US (occurrence: US)
  Receive Date: 20140625
  Receipt Date: 20150115
  Transmission Date: 20150720
  Serious: No
  Sender: FDA-Public Use
  Company Number: US-BAXTER-2014BAX033073

PATIENT

DRUGS (1)
  1. DEXTROSE AND SODIUM CHLORIDE [Suspect]
     Active Substance: DEXTROSE MONOHYDRATE\SODIUM CHLORIDE
     Indication: INTERCEPTED DRUG DISPENSING ERROR
     Route: 065

REACTIONS (3)
  - Intercepted medication error [Unknown]
  - Intercepted drug dispensing error [Unknown]
  - Drug dispensing error [Unknown]
